FAERS Safety Report 8799280 (Version 2)
Quarter: 2012Q4

REPORT INFORMATION
  Report Type: 
  Country: FR (occurrence: FR)
  Receive Date: 20120920
  Receipt Date: 20121108
  Transmission Date: 20130627
  Serious: Yes (Hospitalization)
  Sender: FDA-Public Use
  Company Number: FR-B.I. PHARMACEUTICALS,INC./RIDGEFIELD-2012-FF-01234FF

PATIENT
  Age: 74 Year
  Sex: Male

DRUGS (4)
  1. SIFROL [Suspect]
     Dosage: 2.1 mg
     Route: 048
     Dates: start: 201202
  2. EPIVIR [Suspect]
     Indication: HIV INFECTION
     Dosage: 300 mg
     Route: 048
     Dates: start: 201112
  3. EPIVIR [Suspect]
     Dosage: 150 mg
     Route: 048
  4. ISENTRESS [Suspect]
     Indication: HIV INFECTION
     Dosage: 800 mg
     Route: 048
     Dates: start: 201112, end: 20120830

REACTIONS (1)
  - Aplastic anaemia [Not Recovered/Not Resolved]
